FAERS Safety Report 14403908 (Version 1)
Quarter: 2018Q1

REPORT INFORMATION
  Report Type: Spontaneous
  Country: AT (occurrence: AT)
  Receive Date: 20180117
  Receipt Date: 20180117
  Transmission Date: 20180509
  Serious: Yes (Hospitalization, Other)
  Sender: FDA-Public Use
  Company Number: AT-ALLERGAN-1801705US

PATIENT
  Sex: Male
  Weight: 125 kg

DRUGS (23)
  1. ESCITALOPRAM OXALATE - BP [Suspect]
     Active Substance: ESCITALOPRAM OXALATE
     Dosage: 15 MG, UNKNOWN
     Route: 048
     Dates: start: 20150324
  2. LYRICA [Interacting]
     Active Substance: PREGABALIN
     Dosage: 150 MG, UNKNOWN
     Route: 048
     Dates: start: 20160211, end: 20160214
  3. LYRICA [Interacting]
     Active Substance: PREGABALIN
     Dosage: 300 MG, UNKNOWN
     Route: 048
     Dates: start: 20160209, end: 20160210
  4. WELLBUTRIN [Concomitant]
     Active Substance: BUPROPION HYDROCHLORIDE
     Indication: PRODUCT USED FOR UNKNOWN INDICATION
     Dosage: UNK, UNKNOWN
     Route: 065
     Dates: start: 20150311, end: 20150512
  5. LYRICA [Interacting]
     Active Substance: PREGABALIN
     Dosage: 300 MG, UNKNOWN
     Route: 048
     Dates: start: 201401, end: 201405
  6. TOPAMAX [Suspect]
     Active Substance: TOPIRAMATE
     Indication: PRODUCT USED FOR UNKNOWN INDICATION
     Dosage: 25 MG, UNKNOWN
     Route: 048
     Dates: start: 201601
  7. ESCITALOPRAM OXALATE - BP [Suspect]
     Active Substance: ESCITALOPRAM OXALATE
     Dosage: 10 MG, UNKNOWN
     Route: 048
     Dates: start: 20150313, end: 20150318
  8. LYRICA [Interacting]
     Active Substance: PREGABALIN
     Indication: PRODUCT USED FOR UNKNOWN INDICATION
     Dosage: 450 MG, UNKNOWN
     Route: 048
     Dates: start: 201601
  9. LYRICA [Interacting]
     Active Substance: PREGABALIN
     Dosage: 750 MG, UNKNOWN
     Route: 048
     Dates: start: 20150319
  10. LYRICA [Interacting]
     Active Substance: PREGABALIN
     Dosage: 600 MG, UNKNOWN
     Route: 048
     Dates: start: 201405
  11. RISPERDAL [Interacting]
     Active Substance: RISPERIDONE
     Indication: PRODUCT USED FOR UNKNOWN INDICATION
     Dosage: 0.5 MG, UNKNOWN
     Route: 065
     Dates: start: 20141015, end: 20141023
  12. TOPAMAX [Suspect]
     Active Substance: TOPIRAMATE
     Dosage: 50 MG, UNKNOWN
     Route: 048
     Dates: start: 20141107, end: 20150308
  13. ESCITALOPRAM OXALATE - BP [Suspect]
     Active Substance: ESCITALOPRAM OXALATE
     Dosage: 15 MG, UNKNOWN
     Route: 048
     Dates: start: 20150319
  14. CYMBALTA [Interacting]
     Active Substance: DULOXETINE HYDROCHLORIDE
     Indication: DEPRESSION
     Dosage: 60 MG, UNKNOWN
     Route: 048
     Dates: start: 201401
  15. LYRICA [Interacting]
     Active Substance: PREGABALIN
     Dosage: 375 MG, UNKNOWN
     Route: 048
     Dates: start: 20160208, end: 20160208
  16. PANTOLOC [Concomitant]
     Active Substance: PANTOPRAZOLE SODIUM
     Indication: PRODUCT USED FOR UNKNOWN INDICATION
     Dosage: 40 MG, UNKNOWN
     Route: 065
     Dates: start: 201405
  17. ESCITALOPRAM OXALATE - BP [Suspect]
     Active Substance: ESCITALOPRAM OXALATE
     Indication: PRODUCT USED FOR UNKNOWN INDICATION
     Dosage: 10 MG, UNKNOWN
     Route: 048
     Dates: start: 201601
  18. ESCITALOPRAM OXALATE - BP [Suspect]
     Active Substance: ESCITALOPRAM OXALATE
     Dosage: 10 MG, UNKNOWN
     Route: 048
     Dates: start: 201401
  19. RISPERDAL [Interacting]
     Active Substance: RISPERIDONE
     Dosage: 2 MG, UNKNOWN
     Route: 065
     Dates: start: 20141028, end: 20160204
  20. RISPERDAL [Interacting]
     Active Substance: RISPERIDONE
     Dosage: 1 MG, UNKNOWN
     Route: 065
     Dates: start: 20141024, end: 20141027
  21. TOPAMAX [Suspect]
     Active Substance: TOPIRAMATE
     Dosage: 100 MG, UNKNOWN
     Route: 048
     Dates: start: 20150309
  22. TOPAMAX [Suspect]
     Active Substance: TOPIRAMATE
     Dosage: 25 MG, UNKNOWN
     Route: 048
     Dates: start: 20141030, end: 20141106
  23. RIVOTRIL [Concomitant]
     Active Substance: CLONAZEPAM
     Indication: PRODUCT USED FOR UNKNOWN INDICATION
     Dosage: 0.5 MG, UNKNOWN
     Route: 065
     Dates: start: 20141015, end: 20150315

REACTIONS (10)
  - Frustration tolerance decreased [Unknown]
  - Liver injury [Unknown]
  - Blood cholesterol increased [Unknown]
  - Neutrophil count decreased [Unknown]
  - Weight increased [Recovering/Resolving]
  - Blood triglycerides increased [Unknown]
  - Fatigue [Unknown]
  - Kidney enlargement [Unknown]
  - Splenomegaly [Unknown]
  - Tremor [Unknown]
